FAERS Safety Report 9515998 (Version 2)
Quarter: 2013Q3

REPORT INFORMATION
  Report Type: Spontaneous
  Country: DE (occurrence: DE)
  Receive Date: 20130911
  Receipt Date: 20130924
  Transmission Date: 20140515
  Serious: Yes (Hospitalization, Other)
  Sender: FDA-Public Use
  Company Number: DE-JNJFOC-20130901717

PATIENT
  Sex: 0

DRUGS (16)
  1. FENTANYL [Suspect]
     Indication: PAIN
     Route: 062
  2. TRAMADOL [Suspect]
     Indication: PAIN
     Route: 065
  3. TILIDINE/NALOXONE [Suspect]
     Indication: PAIN
     Route: 065
  4. MORPHINE [Suspect]
     Indication: PAIN
     Route: 065
  5. HYDROMORPHONE [Suspect]
     Indication: PAIN
     Route: 065
  6. OXYCODONE [Suspect]
     Indication: PAIN
     Route: 065
  7. BUPRENORPHINE [Suspect]
     Indication: PAIN
     Route: 065
  8. PETHIDINE [Suspect]
     Indication: PAIN
     Route: 065
  9. METHADONE [Suspect]
     Indication: PAIN
     Route: 065
  10. PARACETAMOL [Concomitant]
     Route: 065
  11. BENZODIAZEPINE NOS [Concomitant]
     Route: 065
  12. FLUPIRTINE [Concomitant]
     Indication: PAIN
     Route: 065
  13. PARECOXIB [Concomitant]
     Indication: PAIN
     Route: 065
  14. DIPYRONE [Concomitant]
     Indication: PAIN
     Route: 065
  15. PREGABALIN [Concomitant]
     Route: 065
  16. GABAPENTIN [Concomitant]
     Route: 065

REACTIONS (3)
  - Drug withdrawal syndrome [Unknown]
  - Pain [Recovered/Resolved]
  - Condition aggravated [Unknown]
